FAERS Safety Report 17864054 (Version 2)
Quarter: 2020Q3

REPORT INFORMATION
  Report Type: Spontaneous
  Country: US (occurrence: US)
  Receive Date: 20200605
  Receipt Date: 20200717
  Transmission Date: 20201103
  Serious: No
  Sender: FDA-Public Use
  Company Number: US-ASTRAZENECA-2020SE45854

PATIENT
  Age: 709 Month
  Sex: Female
  Weight: 77.1 kg

DRUGS (2)
  1. BYDUREON [Suspect]
     Active Substance: EXENATIDE
     Indication: TYPE 2 DIABETES MELLITUS
     Route: 058
     Dates: start: 2010, end: 2012
  2. BYDUREON BCISE [Suspect]
     Active Substance: EXENATIDE
     Indication: TYPE 2 DIABETES MELLITUS
     Route: 058
     Dates: start: 2018

REACTIONS (6)
  - Injection site pain [Unknown]
  - Drug delivery system malfunction [Unknown]
  - Injection site nodule [Not Recovered/Not Resolved]
  - Device leakage [Unknown]
  - Injection site mass [Unknown]
  - Injection site cyst [Unknown]

NARRATIVE: CASE EVENT DATE: 202003
